FAERS Safety Report 25168021 (Version 1)
Quarter: 2025Q2

REPORT INFORMATION
  Report Type: Spontaneous
  Country: US (occurrence: US)
  Receive Date: 20250407
  Receipt Date: 20250407
  Transmission Date: 20250716
  Serious: No
  Sender: BIOGEN
  Company Number: US-BIOGEN-2025BI01306385

PATIENT
  Sex: Female

DRUGS (1)
  1. TECFIDERA [Suspect]
     Active Substance: DIMETHYL FUMARATE
     Indication: Multiple sclerosis
     Route: 050

REACTIONS (6)
  - Depression [Unknown]
  - Insomnia [Unknown]
  - Respiratory disorder [Unknown]
  - Hypoaesthesia [Unknown]
  - Food poisoning [Unknown]
  - Flushing [Unknown]
